FAERS Safety Report 9343066 (Version 2)
Quarter: 2013Q2

REPORT INFORMATION
  Report Type: Report from Study
  Country: DE (occurrence: DE)
  Receive Date: 20130611
  Receipt Date: 20130624
  Transmission Date: 20140414
  Serious: Yes (Death, Life-Threatening)
  Sender: FDA-Public Use
  Company Number: DE-ABBOTT-13P-062-1102879-00

PATIENT
  Age: 42 Year
  Sex: Male
  Weight: 84 kg

DRUGS (6)
  1. HUMIRA [Suspect]
     Indication: PSORIASIS
     Route: 058
     Dates: start: 20120507, end: 20130521
  2. RETINOIDS [Concomitant]
     Indication: PSORIASIS
     Dates: start: 20111123
  3. UVA/UVB [Concomitant]
     Indication: PSORIASIS
  4. VOLTAREN RESINAT [Concomitant]
     Indication: PRODUCT USED FOR UNKNOWN INDICATION
  5. PREDNISOLONE [Concomitant]
     Indication: PRODUCT USED FOR UNKNOWN INDICATION
  6. PANTOPRAZOLE BETA [Concomitant]
     Indication: PRODUCT USED FOR UNKNOWN INDICATION

REACTIONS (1)
  - Death [Fatal]
